FAERS Safety Report 5854424-6 (Version None)
Quarter: 2008Q3

REPORT INFORMATION
  Report Type: 
  Country: None (occurrence: None)
  Receive Date: 20080822
  Receipt Date: 20080806
  Transmission Date: 20090109
  Serious: No
  Sender: FDA-Public Use
  Company Number: US-BOEHRINGER INGELHEIM GMBH, GERMANY-2008-BP-12383BP

PATIENT
  Sex: Female

DRUGS (6)
  1. MIRAPEX [Suspect]
     Indication: RESTLESS LEGS SYNDROME
     Route: 048
     Dates: start: 20080729, end: 20080806
  2. CELEBREX [Concomitant]
  3. IBUPROFEN [Concomitant]
  4. ACETAMINOPHEN [Concomitant]
  5. MULTI-VITAMIN [Concomitant]
  6. GENERIC PM [Concomitant]

REACTIONS (2)
  - RASH [None]
  - URTICARIA [None]
